FAERS Safety Report 23134096 (Version 2)
Quarter: 2024Q1

REPORT INFORMATION
  Report Type: Spontaneous
  Country: RU (occurrence: RU)
  Receive Date: 20231101
  Receipt Date: 20240229
  Transmission Date: 20240410
  Serious: Yes (Hospitalization, Other)
  Sender: FDA-Public Use
  Company Number: RU-BAYER-2023A153986

PATIENT
  Sex: Female

DRUGS (1)
  1. KYLEENA [Suspect]
     Active Substance: LEVONORGESTREL
     Indication: Contraception
     Dosage: 17.5?G/DAY
     Route: 015
     Dates: start: 202308, end: 202310

REACTIONS (9)
  - Salpingitis [None]
  - Peritonitis [None]
  - Thrombocytopenia [None]
  - Hepatosplenomegaly [None]
  - Vaginal haemorrhage [None]
  - Anaemia [None]
  - Weight increased [None]
  - Acne [None]
  - Seborrhoea [None]
